FAERS Safety Report 6748227-8 (Version None)
Quarter: 2010Q2

REPORT INFORMATION
  Report Type: 
  Country: None (occurrence: None)
  Receive Date: 20100601
  Receipt Date: 20100524
  Transmission Date: 20101027
  Serious: Yes (Hospitalization)
  Sender: FDA-Public Use
  Company Number: US-BIOGENIDEC-2010BI012730

PATIENT
  Age: 36 Year
  Sex: Male

DRUGS (2)
  1. TYSABRI [Suspect]
     Indication: MULTIPLE SCLEROSIS
     Route: 042
     Dates: start: 20100215
  2. BACLOFEN [Concomitant]

REACTIONS (3)
  - MEDICAL DEVICE SITE REACTION [None]
  - MUSCLE SPASMS [None]
  - MUSCLE SPASTICITY [None]
